FAERS Safety Report 8313730 (Version 3)
Quarter: 2019Q3

REPORT INFORMATION
  Report Type: Report from Study
  Country: BE (occurrence: BE)
  Receive Date: 20111228
  Receipt Date: 20190916
  Transmission Date: 20191005
  Serious: Yes (Hospitalization)
  Sender: FDA-Public Use
  Company Number: PHHO2011BE021136

PATIENT
  Age: 3 Year
  Sex: Male
  Weight: 15.8 kg

DRUGS (1)
  1. ACZ885 [Suspect]
     Active Substance: CANAKINUMAB
     Indication: CRYOPYRIN ASSOCIATED PERIODIC SYNDROME
     Dosage: 30.6 MG, UNK
     Route: 058
     Dates: start: 20111122, end: 20111220

REACTIONS (2)
  - Influenza [Recovered/Resolved]
  - Lung infection [Recovered/Resolved]

NARRATIVE: CASE EVENT DATE: 20111212
